FAERS Safety Report 10233524 (Version 1)
Quarter: 2014Q2

REPORT INFORMATION
  Report Type: Spontaneous
  Country: FR (occurrence: FR)
  Receive Date: 20140612
  Receipt Date: 20140612
  Transmission Date: 20141212
  Serious: Yes (Hospitalization)
  Sender: FDA-Public Use
  Company Number: FR-DSJP-DSE-2014-111215

PATIENT
  Sex: 0

DRUGS (6)
  1. ALTEISDUO [Suspect]
     Indication: HYPERTENSION
     Dosage: 40MG/12.5MG QD
     Route: 048
     Dates: start: 201304, end: 201403
  2. ALTEISDUO [Suspect]
     Dosage: 40MG/12.5MG QD
     Route: 048
     Dates: start: 20140318, end: 201403
  3. ALTEISDUO [Suspect]
     Dosage: 40MG/12.5MG QD
     Route: 048
     Dates: start: 20140325, end: 20140327
  4. BISOPROLOL [Concomitant]
     Indication: PRODUCT USED FOR UNKNOWN INDICATION
     Route: 048
  5. DIFFU K [Concomitant]
     Indication: PRODUCT USED FOR UNKNOWN INDICATION
     Dosage: 3 DF, QD
     Route: 048
  6. SMECTA                             /07327601/ [Concomitant]
     Indication: GASTROENTERITIS RADIATION
     Dosage: 2 DF, QD
     Route: 048

REACTIONS (9)
  - Loss of consciousness [Unknown]
  - Hypokalaemia [Unknown]
  - Weight decreased [Recovered/Resolved]
  - Dehydration [Unknown]
  - Haemodynamic instability [Unknown]
  - Acute prerenal failure [Unknown]
  - Diarrhoea [Recovered/Resolved]
  - Transaminases increased [Unknown]
  - Vomiting [Unknown]
